FAERS Safety Report 7041228-4 (Version None)
Quarter: 2010Q4

REPORT INFORMATION
  Report Type: 
  Country: None (occurrence: None)
  Receive Date: 20101013
  Receipt Date: 20100831
  Transmission Date: 20110411
  Serious: Yes (Death, Life-Threatening, Other)
  Sender: FDA-Public Use
  Company Number: US-BAXTER-2010BH001912

PATIENT
  Age: 77 Year
  Sex: Male
  Weight: 66 kg

DRUGS (33)
  1. HEPARIN SODIUM INJECTION [Suspect]
     Indication: ARTERIAL ANEURYSM REPAIR
     Route: 042
     Dates: start: 20080102, end: 20080102
  2. HEPARIN SODIUM INJECTION [Suspect]
     Indication: THROMBOSIS PROPHYLAXIS
     Route: 042
     Dates: start: 20080102, end: 20080102
  3. HEPARIN SODIUM INJECTION [Suspect]
     Route: 040
     Dates: start: 20080103, end: 20080103
  4. HEPARIN SODIUM INJECTION [Suspect]
     Route: 040
     Dates: start: 20080103, end: 20080103
  5. HEPARIN SODIUM INJECTION [Suspect]
     Route: 040
     Dates: start: 20080103, end: 20080103
  6. HEPARIN SODIUM INJECTION [Suspect]
     Route: 040
     Dates: start: 20080103, end: 20080103
  7. HEPARIN SODIUM INJECTION [Suspect]
     Route: 058
     Dates: start: 20080124, end: 20080127
  8. HEPARIN SODIUM INJECTION [Suspect]
     Route: 058
     Dates: start: 20080124, end: 20080127
  9. HEPARIN SODIUM INJECTION [Suspect]
     Route: 042
  10. HEPARIN SODIUM INJECTION [Suspect]
     Route: 042
  11. ALLOPURINOL [Concomitant]
     Indication: PRODUCT USED FOR UNKNOWN INDICATION
     Route: 065
  12. LIPITOR [Concomitant]
     Indication: PRODUCT USED FOR UNKNOWN INDICATION
     Route: 065
  13. PLAVIX [Concomitant]
     Indication: PRODUCT USED FOR UNKNOWN INDICATION
     Route: 065
  14. SYNTHROID [Concomitant]
     Indication: PRODUCT USED FOR UNKNOWN INDICATION
     Route: 065
  15. FOSRENOL [Concomitant]
     Indication: PRODUCT USED FOR UNKNOWN INDICATION
     Route: 048
  16. ASPIRIN [Concomitant]
     Indication: PRODUCT USED FOR UNKNOWN INDICATION
     Route: 065
  17. LORAZEPAM [Concomitant]
     Indication: ANXIETY
     Route: 065
  18. NEXIUM [Concomitant]
     Indication: PRODUCT USED FOR UNKNOWN INDICATION
     Route: 065
  19. ESZOPICLONE [Concomitant]
     Indication: PRODUCT USED FOR UNKNOWN INDICATION
     Route: 065
  20. LANOXIN [Concomitant]
     Indication: PRODUCT USED FOR UNKNOWN INDICATION
     Route: 065
  21. TENORMIN [Concomitant]
     Indication: PRODUCT USED FOR UNKNOWN INDICATION
     Route: 065
  22. PHOSLO [Concomitant]
     Indication: PRODUCT USED FOR UNKNOWN INDICATION
     Route: 065
  23. SELENIUM [Concomitant]
     Indication: PRODUCT USED FOR UNKNOWN INDICATION
     Route: 065
  24. LOVAZA [Concomitant]
     Indication: PRODUCT USED FOR UNKNOWN INDICATION
     Route: 065
  25. VITAMIN B COMPLEX CAP [Concomitant]
     Indication: STRESS
     Route: 048
  26. ACETAMINOPHEN [Concomitant]
     Indication: PRODUCT USED FOR UNKNOWN INDICATION
     Route: 065
  27. BISACODYL [Concomitant]
     Indication: PRODUCT USED FOR UNKNOWN INDICATION
     Route: 065
  28. DOCUSATE SODIUM [Concomitant]
     Indication: PRODUCT USED FOR UNKNOWN INDICATION
     Route: 065
  29. FENTANYL [Concomitant]
     Indication: PRODUCT USED FOR UNKNOWN INDICATION
     Route: 065
  30. LORTAB [Concomitant]
     Indication: PRODUCT USED FOR UNKNOWN INDICATION
     Route: 048
  31. MAALOX                                  /USA/ [Concomitant]
     Indication: PRODUCT USED FOR UNKNOWN INDICATION
     Route: 065
  32. ACTIVASE [Concomitant]
     Indication: PRODUCT USED FOR UNKNOWN INDICATION
     Route: 065
  33. CALCIUM CARBONATE [Concomitant]
     Indication: PRODUCT USED FOR UNKNOWN INDICATION
     Route: 048

REACTIONS (18)
  - ABDOMINAL PAIN [None]
  - ACIDOSIS [None]
  - ARTERIOVENOUS GRAFT SITE INFECTION [None]
  - ASTHENIA [None]
  - CARDIAC ARREST [None]
  - CELLULITIS [None]
  - CONVULSION [None]
  - DIZZINESS [None]
  - HAEMORRHAGE [None]
  - HYPOTENSION [None]
  - MENTAL STATUS CHANGES [None]
  - NAUSEA [None]
  - PAIN [None]
  - PNEUMONIA ASPIRATION [None]
  - RESPIRATORY ARREST [None]
  - RESPIRATORY FAILURE [None]
  - SEPTIC SHOCK [None]
  - UNRESPONSIVE TO STIMULI [None]
